FAERS Safety Report 24425865 (Version 2)
Quarter: 2024Q4

REPORT INFORMATION
  Report Type: Report from Study
  Country: US (occurrence: US)
  Receive Date: 20241011
  Receipt Date: 20241113
  Transmission Date: 20250114
  Serious: Yes (Other)
  Sender: ALEXION PHARMACEUTICALS
  Company Number: US-AstraZeneca-CH-00717399A

PATIENT
  Age: 62 Year
  Weight: 50.522 kg

DRUGS (25)
  1. CAPIVASERTIB [Suspect]
     Active Substance: CAPIVASERTIB
     Indication: Pancreatic carcinoma
  2. CAPIVASERTIB [Suspect]
     Active Substance: CAPIVASERTIB
  3. CAPIVASERTIB [Suspect]
     Active Substance: CAPIVASERTIB
  4. CAPIVASERTIB [Suspect]
     Active Substance: CAPIVASERTIB
  5. OMEPRAZOLE [Concomitant]
     Active Substance: OMEPRAZOLE
     Dosage: 1 UNK, QD
  6. OMEPRAZOLE [Concomitant]
     Active Substance: OMEPRAZOLE
     Dosage: 1 UNK, QD
  7. ROPINIROLE [Concomitant]
     Active Substance: ROPINIROLE
     Dosage: 1 DOSAGE FORM, QD
  8. ROPINIROLE [Concomitant]
     Active Substance: ROPINIROLE
     Dosage: 1 DOSAGE FORM, QD
  9. VALTREX [Concomitant]
     Active Substance: VALACYCLOVIR HYDROCHLORIDE
     Dosage: 1 DOSAGE FORM
  10. FOLIC ACID [Concomitant]
     Active Substance: FOLIC ACID
     Dosage: 1 UNK, QD
  11. SODIUM CHLORIDE [Concomitant]
     Active Substance: SODIUM CHLORIDE
  12. CYANOCOBALAMIN [Concomitant]
     Active Substance: CYANOCOBALAMIN
  13. DEXAMETHASONE [Concomitant]
     Active Substance: DEXAMETHASONE
  14. MORPHINE [Concomitant]
     Active Substance: MORPHINE
  15. NICOTINE [Concomitant]
     Active Substance: NICOTINE
  16. DICYCLOMINE [Concomitant]
     Active Substance: DICYCLOMINE HYDROCHLORIDE
  17. ELIQUIS [Concomitant]
     Active Substance: APIXABAN
  18. LIDOCAINE [Concomitant]
     Active Substance: LIDOCAINE
  19. MARINOL [Concomitant]
     Active Substance: DRONABINOL
  20. OLANZAPINE [Concomitant]
     Active Substance: OLANZAPINE
  21. ONDANSETRON [Concomitant]
     Active Substance: ONDANSETRON
  22. LEVOFLOXACIN [Concomitant]
     Active Substance: LEVOFLOXACIN
  23. COMPAZINE [Concomitant]
     Active Substance: PROCHLORPERAZINE MALEATE
  24. CYPROHEPTADINE [Concomitant]
     Active Substance: CYPROHEPTADINE
  25. HYDROCODONE [Concomitant]
     Active Substance: HYDROCODONE

REACTIONS (23)
  - Acquired gene mutation [Unknown]
  - Cachexia [Unknown]
  - Mesenteric neoplasm [Unknown]
  - Hypokalaemia [Unknown]
  - Haematochezia [Unknown]
  - Neutropenia [Unknown]
  - Dyspnoea exertional [Unknown]
  - Back pain [Unknown]
  - Pain in extremity [Unknown]
  - Headache [Unknown]
  - Cancer pain [Unknown]
  - Nausea [Unknown]
  - Vomiting [Unknown]
  - Decreased appetite [Unknown]
  - Iron deficiency anaemia [Unknown]
  - Thrombocytosis [Unknown]
  - Eosinophilia [Unknown]
  - Depression [Unknown]
  - Insomnia [Unknown]
  - Mucosal inflammation [Unknown]
  - Hypocalcaemia [Unknown]
  - Pharyngitis [Unknown]
  - Muscle spasms [Unknown]
